FAERS Safety Report 9357097 (Version 2)
Quarter: 2013Q3

REPORT INFORMATION
  Report Type: Spontaneous
  Country: US (occurrence: US)
  Receive Date: 20130620
  Receipt Date: 20130808
  Transmission Date: 20140515
  Serious: Yes (Hospitalization)
  Sender: FDA-Public Use
  Company Number: US-BIOGENIDEC-2013BI054348

PATIENT
  Sex: Female

DRUGS (1)
  1. AVONEX [Suspect]
     Indication: MULTIPLE SCLEROSIS
     Route: 030
     Dates: start: 20080618

REACTIONS (4)
  - Aphagia [Not Recovered/Not Resolved]
  - Pneumonia aspiration [Unknown]
  - Dysstasia [Not Recovered/Not Resolved]
  - Malaise [Unknown]
